FAERS Safety Report 16215404 (Version 5)
Quarter: 2020Q4

REPORT INFORMATION
  Report Type: Spontaneous
  Country: JP (occurrence: JP)
  Receive Date: 20190419
  Receipt Date: 20201123
  Transmission Date: 20210113
  Serious: Yes (Hospitalization, Other)
  Sender: FDA-Public Use
  Company Number: JP-BRISTOL-MYERS SQUIBB COMPANY-BMS-2019-037780

PATIENT
  Age: 63 Year
  Sex: Male
  Weight: 81 kg

DRUGS (1)
  1. OPDIVO [Suspect]
     Active Substance: NIVOLUMAB
     Indication: NON-SMALL CELL LUNG CANCER RECURRENT
     Dosage: 240 MILLIGRAM, Q2WK
     Route: 041
     Dates: start: 20181212, end: 20190123

REACTIONS (6)
  - Renal impairment [Unknown]
  - Lung disorder [Recovered/Resolved]
  - Autoimmune haemolytic anaemia [Recovering/Resolving]
  - Dermatitis acneiform [Unknown]
  - Hepatic function abnormal [Recovered/Resolved]
  - Erythema [Unknown]

NARRATIVE: CASE EVENT DATE: 20190201
